FAERS Safety Report 4614345-3 (Version None)
Quarter: 2005Q1

REPORT INFORMATION
  Report Type: 
  Country: None (occurrence: None)
  Receive Date: 20050315
  Receipt Date: 20050309
  Transmission Date: 20050727
  Serious: Yes (Hospitalization)
  Sender: FDA-Public Use
  Company Number: BRO-008367

PATIENT
  Age: 56 Year
  Sex: Female

DRUGS (6)
  1. IOPAMIDOL-370 [Suspect]
     Indication: BALLOON-OCCLUDED RETROGRADE TRANSVENOUS OBLITERATION
     Dosage: 120 ML IV
     Route: 042
     Dates: start: 20050126, end: 20050126
  2. IOPAMIDOL-370 [Suspect]
     Indication: GASTRIC VARICES
     Dosage: 120 ML IV
     Route: 042
     Dates: start: 20050126, end: 20050126
  3. CEFAZOLIN SODIUM [Concomitant]
  4. FAMOTIDINE [Concomitant]
  5. HEPARIN [Concomitant]
  6. FUTHAN, (NAFAMOSTAT MESILATE) [Concomitant]

REACTIONS (4)
  - CONDITION AGGRAVATED [None]
  - EOSINOPHILIA [None]
  - POST PROCEDURAL COMPLICATION [None]
  - RASH [None]
